FAERS Safety Report 25698082 (Version 1)
Quarter: 2025Q3

REPORT INFORMATION
  Report Type: Spontaneous
  Country: KR (occurrence: KR)
  Receive Date: 20250819
  Receipt Date: 20250819
  Transmission Date: 20251020
  Serious: Yes (Life-Threatening, Hospitalization, Other)
  Sender: PHARMAXIS
  Company Number: KR-Pharmaxis-001258

PATIENT
  Age: 66 Year
  Sex: Male
  Weight: 51 kg

DRUGS (1)
  1. MANNITOL [Suspect]
     Active Substance: MANNITOL
     Indication: Nephrectomy
     Route: 065

REACTIONS (6)
  - Arteriospasm coronary [Recovered/Resolved]
  - Ventricular extrasystoles [Recovered/Resolved]
  - Ventricular fibrillation [Recovered/Resolved]
  - Diastolic dysfunction [Recovered/Resolved]
  - Cardiac arrest [Recovered/Resolved]
  - Prinzmetal angina [Recovered/Resolved]
